FAERS Safety Report 8038442-8 (Version None)
Quarter: 2012Q1

REPORT INFORMATION
  Report Type: 
  Country: None (occurrence: None)
  Receive Date: 20120111
  Receipt Date: 20111206
  Transmission Date: 20120608
  Serious: No
  Sender: FDA-Public Use
  Company Number: US-AMGEN-USASP2011064773

PATIENT
  Age: 39 Year
  Sex: Female

DRUGS (2)
  1. ENBREL [Suspect]
     Indication: PSORIATIC ARTHROPATHY
     Dosage: 50 MG, 2 TIMES/WK
     Dates: start: 20111202
  2. ENBREL [Suspect]
     Indication: PSORIASIS

REACTIONS (3)
  - DRUG EFFECT DECREASED [None]
  - PSORIASIS [None]
  - PSORIATIC ARTHROPATHY [None]
